FAERS Safety Report 9025248 (Version 1)
Quarter: 2013Q1

REPORT INFORMATION
  Report Type: Spontaneous
  Country: US (occurrence: US)
  Receive Date: 20130122
  Receipt Date: 20130122
  Transmission Date: 20140127
  Serious: Yes (Death, Hospitalization)
  Sender: FDA-Public Use
  Company Number: US-GILEAD-2013-0068187

PATIENT
  Age: 64 Year
  Sex: Male

DRUGS (5)
  1. LETAIRIS [Suspect]
     Indication: PULMONARY ARTERIAL HYPERTENSION
     Dosage: 5 MG, QD
     Dates: start: 20121016, end: 20121017
  2. VIAGRA [Concomitant]
  3. SPORANOX [Concomitant]
  4. ALLOPURINOL [Concomitant]
  5. VICODIN [Concomitant]

REACTIONS (8)
  - Pseudomonal sepsis [Fatal]
  - Septic shock [Fatal]
  - Sepsis [Fatal]
  - Respiratory failure [Fatal]
  - Tracheitis [Fatal]
  - Urinary tract infection [Fatal]
  - Pneumonia pseudomonas aeruginosa [Fatal]
  - Unevaluable event [Fatal]
